FAERS Safety Report 5715395-6 (Version None)
Quarter: 2008Q2

REPORT INFORMATION
  Report Type: 
  Country: None (occurrence: None)
  Receive Date: 20080423
  Receipt Date: 20080411
  Transmission Date: 20081010
  Serious: Yes (Hospitalization, Other)
  Sender: FDA-Public Use
  Company Number: US-PFIZER INC-2008033406

PATIENT
  Sex: Female

DRUGS (1)
  1. CHANTIX [Suspect]
     Indication: SMOKING CESSATION THERAPY

REACTIONS (9)
  - ANXIETY [None]
  - CRYING [None]
  - FEELINGS OF WORTHLESSNESS [None]
  - INSOMNIA [None]
  - NERVOUSNESS [None]
  - PANIC ATTACK [None]
  - SPEECH DISORDER [None]
  - SUICIDE ATTEMPT [None]
  - TREMOR [None]
